FAERS Safety Report 21630784 (Version 2)
Quarter: 2023Q1

REPORT INFORMATION
  Report Type: Spontaneous
  Country: BE (occurrence: BE)
  Receive Date: 20221123
  Receipt Date: 20230112
  Transmission Date: 20230418
  Serious: Yes (Death, Other)
  Sender: FDA-Public Use
  Company Number: BE-CELLTRION INC.-2022BE016270

PATIENT

DRUGS (13)
  1. RITUXIMAB [Suspect]
     Active Substance: RITUXIMAB
     Indication: Acquired haemophilia
     Dosage: 375 MG/M2 WEEKLY (2 DOSES)
     Route: 065
  2. RITUXIMAB [Suspect]
     Active Substance: RITUXIMAB
     Indication: Pemphigoid
  3. METHYLPREDNISOLONE [Suspect]
     Active Substance: METHYLPREDNISOLONE
     Indication: Acquired haemophilia
     Dosage: 64 MG, DAILY/64 MG, QD
  4. METHYLPREDNISOLONE [Suspect]
     Active Substance: METHYLPREDNISOLONE
     Indication: Pemphigoid
  5. EMICIZUMAB [Suspect]
     Active Substance: EMICIZUMAB
     Indication: Pemphigoid
     Dosage: 270 MG, 1/WEEK/270 MG, QW(3 MG/KG)
  6. EMICIZUMAB [Suspect]
     Active Substance: EMICIZUMAB
     Indication: Acquired haemophilia
  7. NOVOSEVEN [Suspect]
     Active Substance: COAGULATION FACTOR VIIA RECOMBINANT HUMAN
     Indication: Acquired haemophilia
     Dosage: RECOMBINANT ACTIVATED FACTOR VII (EPTACOGALFA ACTIVIATED, NOVOSEVEN)
  8. NOVOSEVEN [Suspect]
     Active Substance: COAGULATION FACTOR VIIA RECOMBINANT HUMAN
     Indication: Pemphigoid
  9. NICOTINAMIDE [Concomitant]
     Active Substance: NIACINAMIDE
  10. VAXZEVRIA [Concomitant]
     Active Substance: AZD-1222
  11. DOXYCYCLINE [Concomitant]
     Active Substance: DOXYCYCLINE
  12. HEMLIBRA [Concomitant]
     Active Substance: EMICIZUMAB-KXWH
     Dosage: 270 MG, 1/WEEK
  13. EPTACOG ALFA [Concomitant]
     Active Substance: COAGULATION FACTOR VIIA RECOMBINANT HUMAN

REACTIONS (5)
  - Death [Fatal]
  - Factor VIII activity decreased [Unknown]
  - Staphylococcal sepsis [Unknown]
  - Drug ineffective [Unknown]
  - Off label use [Unknown]
